FAERS Safety Report 25475192 (Version 2)
Quarter: 2025Q3

REPORT INFORMATION
  Report Type: Spontaneous
  Country: US (occurrence: US)
  Receive Date: 20250624
  Receipt Date: 20250715
  Transmission Date: 20251021
  Serious: Yes (Other)
  Sender: ABBVIE
  Company Number: US-ABBVIE-6339585

PATIENT
  Age: 67 Year
  Sex: Female
  Weight: 64.41 kg

DRUGS (8)
  1. SYNTHROID [Suspect]
     Active Substance: LEVOTHYROXINE SODIUM
     Indication: Product used for unknown indication
     Route: 048
  2. SYNTHROID [Suspect]
     Active Substance: LEVOTHYROXINE SODIUM
     Indication: Product used for unknown indication
     Route: 048
     Dates: start: 2022
  3. CALCIUM [Concomitant]
     Active Substance: CALCIUM
     Indication: Product used for unknown indication
  4. MAGNESIUM [Concomitant]
     Active Substance: MAGNESIUM
     Indication: Product used for unknown indication
  5. TYLENOL [Concomitant]
     Active Substance: ACETAMINOPHEN
     Indication: Product used for unknown indication
  6. REBLOZYL [Concomitant]
     Active Substance: LUSPATERCEPT-AAMT
     Indication: Myelodysplastic syndrome
  7. LEVOTHYROXINE [Suspect]
     Active Substance: LEVOTHYROXINE
     Indication: Product used for unknown indication
     Route: 065
  8. LEVOTHYROXINE [Suspect]
     Active Substance: LEVOTHYROXINE
     Indication: Product used for unknown indication
     Route: 065
     Dates: start: 20250611

REACTIONS (9)
  - Myelodysplastic syndrome [Not Recovered/Not Resolved]
  - Osteopenia [Unknown]
  - Sideroblastic anaemia [Unknown]
  - Carpal tunnel decompression [Recovered/Resolved]
  - Meniscus operation [Recovered/Resolved]
  - Haematological malignancy [Not Recovered/Not Resolved]
  - Hyperthyroidism [Unknown]
  - Blood thyroid stimulating hormone abnormal [Unknown]
  - Goitre [Unknown]

NARRATIVE: CASE EVENT DATE: 19820101
